FAERS Safety Report 9410636 (Version 1)
Quarter: 2013Q2

REPORT INFORMATION
  Report Type: Spontaneous
  Country: US (occurrence: US)
  Receive Date: 20130607
  Receipt Date: 20130607
  Transmission Date: 20140414
  Serious: Yes (Other)
  Sender: FDA-Public Use
  Company Number: ADR-2013-00947

PATIENT
  Age: 70 Year
  Sex: Male

DRUGS (3)
  1. BACLOFEN INTRATHECAL [Suspect]
  2. MARCAINE [Concomitant]
  3. MORPHINE INTRATHECAL [Concomitant]

REACTIONS (3)
  - Cervical vertebral fracture [None]
  - Balance disorder [None]
  - Balance disorder [None]
